FAERS Safety Report 18464643 (Version 1)
Quarter: 2020Q4

REPORT INFORMATION
  Report Type: Spontaneous
  Country: US (occurrence: US)
  Receive Date: 20201104
  Receipt Date: 20201104
  Transmission Date: 20210114
  Serious: No
  Sender: FDA-Public Use
  Company Number: US-PFIZER INC-2020422153

PATIENT
  Age: 65 Year
  Sex: Female
  Weight: 88 kg

DRUGS (2)
  1. DEPO-MEDROL [Suspect]
     Active Substance: METHYLPREDNISOLONE ACETATE
     Indication: LIGAMENT SPRAIN
     Dosage: 80 MG (ONE SHOT INJECTED INTO LEFT HIP BURSA SAC)
     Route: 030
     Dates: start: 20201002
  2. FLU [Suspect]
     Active Substance: INFLUENZA VIRUS VACCINE
     Dosage: UNK
     Dates: start: 20200914

REACTIONS (9)
  - Burning sensation [Unknown]
  - Product use in unapproved indication [Unknown]
  - Off label use [Unknown]
  - Pruritus [Not Recovered/Not Resolved]
  - Injection site pruritus [Unknown]
  - Rash macular [Unknown]
  - Pain [Unknown]
  - Condition aggravated [Unknown]
  - Hyperhidrosis [Unknown]

NARRATIVE: CASE EVENT DATE: 202010
